FAERS Safety Report 9740239 (Version 1)
Quarter: 2013Q4

REPORT INFORMATION
  Report Type: Spontaneous
  Country: US (occurrence: US)
  Receive Date: 20131209
  Receipt Date: 20131209
  Transmission Date: 20140711
  Serious: No
  Sender: FDA-Public Use
  Company Number: US-BIOGENIDEC-2013BI091629

PATIENT
  Age: 51 Year
  Sex: Female
  Weight: 50 kg

DRUGS (10)
  1. TECFIDERA [Suspect]
     Indication: MULTIPLE SCLEROSIS
     Route: 048
     Dates: start: 20130815
  2. ASPIRIN [Concomitant]
  3. CLARITIN [Concomitant]
  4. CALCIUM AND MAGNESIUM [Concomitant]
  5. FISH OIL [Concomitant]
  6. KLONOPIN [Concomitant]
  7. PRILOSEC [Concomitant]
  8. VITAMIN B 12 CR [Concomitant]
  9. VITAMIN D [Concomitant]
  10. PANTOPRAZOLE [Concomitant]

REACTIONS (2)
  - Gastrooesophageal reflux disease [Not Recovered/Not Resolved]
  - Dyspepsia [Not Recovered/Not Resolved]
